FAERS Safety Report 9220978 (Version 2)
Quarter: 2013Q2

REPORT INFORMATION
  Report Type: Spontaneous
  Country: NL (occurrence: NL)
  Receive Date: 20130409
  Receipt Date: 20130429
  Transmission Date: 20140414
  Serious: Yes (Hospitalization)
  Sender: FDA-Public Use
  Company Number: PHHY2013NL033883

PATIENT
  Age: 43 Year
  Sex: Male
  Weight: 70 kg

DRUGS (7)
  1. OLANZAPINE [Suspect]
     Indication: SCHIZOPHRENIA
     Dosage: 30 MG, QD
     Route: 048
     Dates: start: 201207, end: 201209
  2. OLANZAPINE [Suspect]
     Dosage: 20 MG, QD
     Route: 048
     Dates: start: 201209
  3. OLANZAPINE [Suspect]
     Dosage: 20 MG, QD
     Route: 048
     Dates: start: 201211, end: 20121115
  4. LOSARTAN [Concomitant]
     Dosage: 1 DF, QD
  5. HYDROCHLOORTHIAZIDE [Concomitant]
     Dosage: 1 DF, QD
  6. DOXAZOSINE [Concomitant]
     Dosage: 1 DF, QD
  7. FOLIUMZUUR [Concomitant]
     Dosage: 1 DF, QD

REACTIONS (2)
  - Pancytopenia [Recovered/Resolved]
  - Haemolysis [Recovered/Resolved]
